FAERS Safety Report 9337158 (Version 1)
Quarter: 2013Q2

REPORT INFORMATION
  Report Type: Spontaneous
  Country: US (occurrence: US)
  Receive Date: 20130607
  Receipt Date: 20130607
  Transmission Date: 20140414
  Serious: No
  Sender: FDA-Public Use
  Company Number: US-PFIZER INC-2013170174

PATIENT
  Sex: Female

DRUGS (2)
  1. LYRICA [Suspect]
     Indication: POST HERPETIC NEURALGIA
     Dosage: UNK
     Dates: start: 2013
  2. LYRICA [Suspect]
     Indication: PAIN

REACTIONS (3)
  - Drug ineffective [Unknown]
  - Migraine [Unknown]
  - Drug intolerance [Unknown]
